FAERS Safety Report 25182322 (Version 1)
Quarter: 2025Q2

REPORT INFORMATION
  Report Type: Spontaneous
  Country: US (occurrence: US)
  Receive Date: 20250410
  Receipt Date: 20250410
  Transmission Date: 20250716
  Serious: No
  Sender: KINIKSA PHARMACEUTICALS
  Company Number: US-Kiniksa Pharmaceuticals Ltd.-2024KPU001256

PATIENT
  Age: 45 Year
  Sex: Female

DRUGS (2)
  1. ARCALYST [Suspect]
     Active Substance: RILONACEPT
     Indication: Product used for unknown indication
     Route: 058
     Dates: start: 202404
  2. ARCALYST [Suspect]
     Active Substance: RILONACEPT
     Indication: Product used for unknown indication

REACTIONS (3)
  - Lymph node pain [Not Recovered/Not Resolved]
  - Throat irritation [Not Recovered/Not Resolved]
  - SARS-CoV-2 test positive [Unknown]

NARRATIVE: CASE EVENT DATE: 20240726
